FAERS Safety Report 7267806-5 (Version None)
Quarter: 2011Q1

REPORT INFORMATION
  Report Type: 
  Country: None (occurrence: None)
  Receive Date: 20110201
  Receipt Date: 20110121
  Transmission Date: 20110831
  Serious: Yes (Hospitalization, Other)
  Sender: FDA-Public Use
  Company Number: B0668560A

PATIENT
  Sex: Female
  Weight: 54 kg

DRUGS (1)
  1. ARIXTRA [Suspect]
     Indication: THROMBOSIS PROPHYLAXIS
     Dosage: 2.5MG PER DAY
     Route: 058
     Dates: start: 20100319, end: 20100402

REACTIONS (2)
  - POST PROCEDURAL HAEMATOMA [None]
  - RED BLOOD CELL COUNT DECREASED [None]
